FAERS Safety Report 18036227 (Version 3)
Quarter: 2020Q3

REPORT INFORMATION
  Report Type: Spontaneous
  Country: US (occurrence: US)
  Receive Date: 20200717
  Receipt Date: 20200813
  Transmission Date: 20201103
  Serious: Yes (Other)
  Sender: FDA-Public Use
  Company Number: US-009507513-2007USA005499

PATIENT
  Age: 72 Year
  Sex: Female

DRUGS (7)
  1. CUBICIN [Suspect]
     Active Substance: DAPTOMYCIN
     Indication: STAPHYLOCOCCAL INFECTION
     Dosage: 8MG/KG MONDAY/WEDNESDAY; 9MG/KG FRIDAY POST?HEMODIALYSIS (PHD))
     Route: 042
  2. CUBICIN [Suspect]
     Active Substance: DAPTOMYCIN
     Indication: ENTEROCOCCAL INFECTION
     Dosage: 8MG/KG MONDAY/WEDNESDAY; 12MG/KG FRIDAY PHD
  3. CUBICIN [Suspect]
     Active Substance: DAPTOMYCIN
     Dosage: FIFTH COURSE, 11MG/KG PHD
  4. CUBICIN [Suspect]
     Active Substance: DAPTOMYCIN
     Dosage: 11MG/KG PHD, FOURTH COURSE
  5. CUBICIN [Suspect]
     Active Substance: DAPTOMYCIN
     Indication: STAPHYLOCOCCAL INFECTION
     Dosage: 8MG/KG MONDAY/WEDNESDAY; 12MG/KG FRIDAY PHD
  6. CUBICIN [Suspect]
     Active Substance: DAPTOMYCIN
     Dosage: 11MG/KG PHD
  7. RIFAMPIN. [Concomitant]
     Active Substance: RIFAMPIN

REACTIONS (2)
  - Drug ineffective [Unknown]
  - Pathogen resistance [Recovered/Resolved]
